FAERS Safety Report 14978825 (Version 1)
Quarter: 2018Q2

REPORT INFORMATION
  Report Type: Report from Study
  Country: BR (occurrence: BR)
  Receive Date: 20180606
  Receipt Date: 20180606
  Transmission Date: 20180711
  Serious: Yes (Other)
  Sender: FDA-Public Use
  Company Number: PHHY2016BR087996

PATIENT
  Sex: Female
  Weight: 70 kg

DRUGS (2)
  1. SANDOSTATIN LAR DEPOT [Suspect]
     Active Substance: OCTREOTIDE ACETATE
     Indication: ACROMEGALY
     Dosage: 20 MG, QMO
     Route: 030
     Dates: start: 2005
  2. SANDOSTATIN LAR DEPOT [Suspect]
     Active Substance: OCTREOTIDE ACETATE
     Dosage: 30 MG, QMO
     Route: 030

REACTIONS (11)
  - Memory impairment [Unknown]
  - Renal disorder [Unknown]
  - Osteoarthritis [Not Recovered/Not Resolved]
  - Malaise [Unknown]
  - Blood urine present [Unknown]
  - Fall [Unknown]
  - Gait disturbance [Unknown]
  - Swelling [Unknown]
  - Weight decreased [Not Recovered/Not Resolved]
  - Body height abnormal [Unknown]
  - Injection site pain [Unknown]
